FAERS Safety Report 6182555-2 (Version None)
Quarter: 2009Q2

REPORT INFORMATION
  Report Type: 
  Country: None (occurrence: None)
  Receive Date: 20090507
  Receipt Date: 20090427
  Transmission Date: 20091009
  Serious: Yes (Hospitalization)
  Sender: FDA-Public Use
  Company Number: IT-PFIZER INC-2009194829

PATIENT

DRUGS (1)
  1. LYRICA [Suspect]
     Indication: DIABETIC NEUROPATHY
     Dosage: 150 MG, 1X/DAY
     Route: 048
     Dates: start: 20090123, end: 20090125

REACTIONS (2)
  - BRADYCARDIA [None]
  - SYNCOPE [None]
